FAERS Safety Report 26012525 (Version 1)
Quarter: 2025Q4

REPORT INFORMATION
  Report Type: Other
  Country: EU (occurrence: EU)
  Receive Date: 20251107
  Receipt Date: 20251107
  Transmission Date: 20260117
  Serious: Yes (Other)
  Sender: Integrated Therapeutic Solutions
  Company Number: EU-Integrated Therapeutic Solutions Inc.-2188095

PATIENT
  Age: 83 Year
  Sex: Male

DRUGS (3)
  1. PYLERA [Suspect]
     Active Substance: BISMUTH SUBCITRATE POTASSIUM\METRONIDAZOLE\TETRACYCLINE HYDROCHLORIDE
     Indication: Dyspepsia
     Dates: start: 20250930, end: 20251012
  2. FLATORIL 500 microgramos/200 mg?CAPSULAS DURAS , 45 c?psulas?(Clebopri [Concomitant]
  3. COAPROVEL 300 mg/25 mg?COMPRIMIDOS RECUBIERTOS CON?PELICULA, 28 compri [Concomitant]

REACTIONS (4)
  - Syncope [Unknown]
  - Product use in unapproved indication [Unknown]
  - Product use issue [Unknown]
  - Dizziness [Unknown]

NARRATIVE: CASE EVENT DATE: 20251003
